FAERS Safety Report 11461048 (Version 3)
Quarter: 2015Q4

REPORT INFORMATION
  Report Type: Spontaneous
  Country: JP (occurrence: JP)
  Receive Date: 20150904
  Receipt Date: 20151230
  Transmission Date: 20160304
  Serious: Yes (Other)
  Sender: FDA-Public Use
  Company Number: JP-BRISTOL-MYERS SQUIBB COMPANY-BMS-2005-000023

PATIENT
  Age: 7 Decade
  Sex: Female

DRUGS (4)
  1. DAKLINZA [Suspect]
     Active Substance: DACLATASVIR
     Indication: HEPATIC CIRRHOSIS
  2. DAKLINZA [Suspect]
     Active Substance: DACLATASVIR
     Indication: CHRONIC HEPATITIS C
     Dosage: 60 MG, QD
     Route: 048
     Dates: start: 20150629
  3. SUNVEPRA [Suspect]
     Active Substance: ASUNAPREVIR
     Indication: CHRONIC HEPATITIS C
     Dosage: 100 MG, BID
     Route: 048
     Dates: start: 20150629
  4. SUNVEPRA [Suspect]
     Active Substance: ASUNAPREVIR
     Indication: HEPATIC CIRRHOSIS

REACTIONS (2)
  - Liver function test abnormal [Not Recovered/Not Resolved]
  - Platelet count decreased [Recovered/Resolved]

NARRATIVE: CASE EVENT DATE: 20150817
